FAERS Safety Report 9297302 (Version 1)
Quarter: 2013Q2

REPORT INFORMATION
  Report Type: Spontaneous
  Country: US (occurrence: None)
  Receive Date: 20130517
  Receipt Date: 20130517
  Transmission Date: 20140414
  Serious: Yes (Death)
  Sender: FDA-Public Use
  Company Number: None

PATIENT
  Age: 65 Year
  Sex: Male

DRUGS (1)
  1. XTANDI 40MG ASTELLAS [Suspect]
     Indication: PROSTATE CANCER
     Dosage: 160MG QAM PO
     Route: 048
     Dates: start: 20121115, end: 201212

REACTIONS (2)
  - Prostate cancer metastatic [None]
  - Malignant neoplasm progression [None]
